FAERS Safety Report 14651929 (Version 1)
Quarter: 2018Q1

REPORT INFORMATION
  Report Type: Spontaneous
  Country: SA (occurrence: SA)
  Receive Date: 20180317
  Receipt Date: 20180317
  Transmission Date: 20180509
  Serious: Yes (Hospitalization, Other)
  Sender: FDA-Public Use
  Company Number: SA-AMGEN-SAUSP2018036936

PATIENT
  Age: 29 Year
  Sex: Female

DRUGS (1)
  1. ENBREL [Suspect]
     Active Substance: ETANERCEPT
     Indication: PSORIATIC ARTHROPATHY
     Dosage: UNK, WEEKLY
     Route: 058
     Dates: start: 201702, end: 201803

REACTIONS (4)
  - Injection site dryness [Not Recovered/Not Resolved]
  - Retinal detachment [Not Recovered/Not Resolved]
  - Vision blurred [Not Recovered/Not Resolved]
  - Injection site pruritus [Not Recovered/Not Resolved]
